FAERS Safety Report 20488118 (Version 5)
Quarter: 2022Q3

REPORT INFORMATION
  Report Type: Report from Study
  Country: US (occurrence: US)
  Receive Date: 20220218
  Receipt Date: 20220925
  Transmission Date: 20221027
  Serious: Yes (Other)
  Sender: FDA-Public Use
  Company Number: US-NOVARTISTESTPH-NVSC2022US036062

PATIENT
  Sex: Female
  Weight: 87.1 kg

DRUGS (23)
  1. KESIMPTA [Suspect]
     Active Substance: OFATUMUMAB
     Indication: Multiple sclerosis
     Dosage: 20 MG, QMO (INJECT 1 PEN (20MG) SUBCUTANEOUSLY MONTHLY STARTING AT WEEK 4 AS DIRECTED )
     Route: 058
  2. ASPIRIN [Concomitant]
     Active Substance: ASPIRIN
     Indication: Product used for unknown indication
     Dosage: 81 MG
     Route: 048
  3. LIORESAL [Concomitant]
     Active Substance: BACLOFEN
     Indication: Product used for unknown indication
     Dosage: 2 DOSAGE FORM, EVERY EVENING
     Route: 048
     Dates: start: 20211122, end: 20220609
  4. VITAMIN D3 [Concomitant]
     Active Substance: CHOLECALCIFEROL
     Indication: Product used for unknown indication
     Dosage: 50 UG, QD (2000 UT)
     Route: 048
  5. LEXAPRO [Concomitant]
     Active Substance: ESCITALOPRAM OXALATE
     Indication: Product used for unknown indication
     Dosage: 1 DOSAGE FORM, QD
     Route: 048
     Dates: start: 20210303, end: 20220223
  6. TRICOR [Concomitant]
     Active Substance: FENOFIBRATE
     Indication: Product used for unknown indication
     Dosage: 1 DOSAGE FORM, QD
     Route: 048
     Dates: start: 20210715, end: 20220412
  7. AMARYL [Concomitant]
     Active Substance: GLIMEPIRIDE
     Indication: Product used for unknown indication
     Dosage: 1 DOSAGE FORM, QD
     Route: 048
     Dates: start: 20211230
  8. LANTUS [Concomitant]
     Active Substance: INSULIN GLARGINE
     Indication: Product used for unknown indication
     Dosage: STRENGTH 100 UNIT PER ML, DOSE 40 UNITS, LANTUS SOLOSTAR/ BASAGLAR, INJECT 30 UNITS INTO THE SKIN NI
     Route: 058
     Dates: start: 20211115, end: 20220215
  9. BASAGLAR [Concomitant]
     Active Substance: INSULIN GLARGINE
     Indication: Product used for unknown indication
     Dosage: STRENGTH 100 UNIT PER ML, DOSE 40 UNITS, QN, INJECT 30 UNITS INJECT THE SKIN NIGHTLY
     Route: 058
     Dates: start: 20211115, end: 20220215
  10. HUMALOG [Concomitant]
     Active Substance: INSULIN LISPRO
     Indication: Product used for unknown indication
     Dosage: STRENGTH 100 UNIT PER ML, DOSE 10 UNITS, TID, INJECT 10 UNITS UNDER THE SKIN THREE TIMES A DAY PLUS
     Route: 058
     Dates: start: 20220207, end: 20220215
  11. LISINOPRIL [Concomitant]
     Active Substance: LISINOPRIL
     Indication: Product used for unknown indication
     Dosage: 1 DOSAGE FORM, QD
     Route: 048
     Dates: start: 20220113
  12. ATIVAN [Concomitant]
     Active Substance: LORAZEPAM
     Indication: Anxiety
     Dosage: 1 DOSAGE FORM, BEDTIME AS NEEDED  PRN
     Route: 048
     Dates: start: 20211102, end: 20220213
  13. MYCOSTATIN [Concomitant]
     Active Substance: NYSTATIN
     Indication: Ill-defined disorder
     Dosage: UNK UNK, TID
     Route: 065
     Dates: start: 20200220
  14. FISH OIL [Concomitant]
     Active Substance: FISH OIL
     Indication: Product used for unknown indication
     Dosage: 1000 MG, QD
     Route: 048
  15. PRILOSEC [Concomitant]
     Active Substance: OMEPRAZOLE MAGNESIUM
     Indication: Product used for unknown indication
     Dosage: 1 DOSAGE FORM, QD
     Route: 048
     Dates: start: 20210521, end: 20220322
  16. DITROPAN [Concomitant]
     Active Substance: OXYBUTYNIN CHLORIDE
     Indication: Product used for unknown indication
     Dosage: 1 DOSAGE FORM, QD
     Route: 048
     Dates: start: 20220113, end: 20220512
  17. NULYTELY [Concomitant]
     Active Substance: POLYETHYLENE GLYCOL 3350\POTASSIUM CHLORIDE\SODIUM BICARBONATE\SODIUM CHLORIDE
     Indication: Product used for unknown indication
     Dosage: DILUTE POWDER AND DRINK BY MOUTH AS DIRECTED
     Route: 048
     Dates: start: 20220127, end: 20220512
  18. PEG-3350 AND ELECTROLYTES [Concomitant]
     Active Substance: POLYETHYLENE GLYCOL 3350\POTASSIUM CHLORIDE\SODIUM BICARBONATE\SODIUM CHLORIDE\SODIUM SULFATE
     Indication: Product used for unknown indication
     Dosage: SOLR
     Route: 065
     Dates: start: 20220202, end: 20220512
  19. CRESTOR [Concomitant]
     Active Substance: ROSUVASTATIN CALCIUM
     Indication: Product used for unknown indication
     Dosage: 1.5 DOSAGE FORM, EVERY 3 DAYS
     Route: 065
     Dates: start: 20210708, end: 20220302
  20. SODIUM FLUORIDE [Concomitant]
     Active Substance: SODIUM FLUORIDE
     Indication: Product used for unknown indication
     Dosage: STRENGTH 5000 PPM 1.1 % PSTE DENTAL PASTE
     Route: 004
     Dates: start: 20211004
  21. VALTREX [Concomitant]
     Active Substance: VALACYCLOVIR HYDROCHLORIDE
     Indication: Product used for unknown indication
     Dosage: 2 DOSAGE FORM, QD
     Route: 048
     Dates: start: 20201102
  22. SINEMET [Concomitant]
     Active Substance: CARBIDOPA\LEVODOPA
     Indication: Restless legs syndrome
     Dosage: STRENGHT (25-100 MG), 1 DOSAGE FORM, BID, WITH BREAKFAST AND LUNCH
     Route: 048
     Dates: start: 20200806, end: 20220420
  23. MYCOSTATIN [Concomitant]
     Active Substance: NYSTATIN
     Indication: Ill-defined disorder
     Dosage: FORMULATION POWDER, TID
     Route: 065
     Dates: start: 20200220

REACTIONS (8)
  - Secondary progressive multiple sclerosis [Unknown]
  - Extraocular muscle disorder [Unknown]
  - Ataxia [Not Recovered/Not Resolved]
  - Decreased vibratory sense [Unknown]
  - Gait disturbance [Unknown]
  - Fatigue [Not Recovered/Not Resolved]
  - Asthenia [Unknown]
  - Inappropriate schedule of product administration [Unknown]
